FAERS Safety Report 17876589 (Version 1)
Quarter: 2020Q2

REPORT INFORMATION
  Report Type: Spontaneous
  Country: TT (occurrence: TT)
  Receive Date: 20200609
  Receipt Date: 20200609
  Transmission Date: 20200714
  Serious: Yes (Other)
  Sender: FDA-Public Use
  Company Number: NVSC2020TT160420

PATIENT
  Age: 50 Year
  Sex: Male

DRUGS (1)
  1. IRBESARTAN. [Suspect]
     Active Substance: IRBESARTAN
     Indication: HYPERTENSION
     Dosage: 300 MG, UNKNOWN
     Route: 065
     Dates: start: 20200515

REACTIONS (2)
  - Hypertension [Unknown]
  - Blood pressure fluctuation [Unknown]
